FAERS Safety Report 7092077-2 (Version None)
Quarter: 2010Q4

REPORT INFORMATION
  Report Type: 
  Country: None (occurrence: None)
  Receive Date: 20101109
  Receipt Date: 20101029
  Transmission Date: 20110411
  Serious: Yes (Hospitalization)
  Sender: FDA-Public Use
  Company Number: GB-US-EMD SERONO, INC.-7018852

PATIENT
  Sex: Female

DRUGS (3)
  1. REBIF [Suspect]
     Indication: RELAPSING-REMITTING MULTIPLE SCLEROSIS
     Dates: start: 20100801
  2. PARACETAMOL [Concomitant]
  3. IBUPROFEN TABLETS [Concomitant]

REACTIONS (15)
  - ABDOMINAL DISCOMFORT [None]
  - ARTHRALGIA [None]
  - ASTHENIA [None]
  - BLOOD POTASSIUM DECREASED [None]
  - BLOOD URINE PRESENT [None]
  - DECREASED APPETITE [None]
  - DEVICE ISSUE [None]
  - FATIGUE [None]
  - HEADACHE [None]
  - INFLUENZA LIKE ILLNESS [None]
  - INJECTION SITE HAEMORRHAGE [None]
  - LETHARGY [None]
  - PYREXIA [None]
  - URINARY TRACT INFECTION [None]
  - VIRAL INFECTION [None]
